FAERS Safety Report 7951626-X (Version None)
Quarter: 2011Q4

REPORT INFORMATION
  Report Type: 
  Country: None (occurrence: None)
  Receive Date: 20111201
  Receipt Date: 20111128
  Transmission Date: 20120403
  Serious: Yes (Death)
  Sender: FDA-Public Use
  Company Number: GB-ROCHE-GNE321980

PATIENT
  Sex: Male

DRUGS (13)
  1. LUCENTIS [Suspect]
     Indication: AGE-RELATED MACULAR DEGENERATION
     Route: 050
  2. PERINDOPRIL ERBUMINE [Concomitant]
  3. IPRATROPIUM BROMIDE [Concomitant]
  4. SIMVASTATIN [Concomitant]
  5. ASPIRIN [Concomitant]
  6. LEVOTHYROXINE SODIUM [Concomitant]
  7. AMLODIPINE [Concomitant]
  8. ACETAMINOPHEN [Concomitant]
  9. SALMETEROL [Concomitant]
  10. TIOTROPIUM [Concomitant]
  11. VENTOLIN [Concomitant]
  12. FLUTICASONE PROPIONATE [Concomitant]
  13. FERROUS SULFATE TAB [Concomitant]

REACTIONS (1)
  - DEATH [None]
